FAERS Safety Report 5453026-3 (Version None)
Quarter: 2007Q3

REPORT INFORMATION
  Report Type: 
  Country: None (occurrence: None)
  Receive Date: 20070914
  Receipt Date: 20070910
  Transmission Date: 20080115
  Serious: Yes (Death)
  Sender: FDA-Public Use
  Company Number: NL-BOEHRINGER INGELHEIM PHARMACEUTICALS, INC.-2007-NL-00089NL

PATIENT
  Sex: Male

DRUGS (4)
  1. SIFROL 0.088MG [Suspect]
     Indication: RESTLESS LEGS SYNDROME
  2. DURAGESIC-100 [Concomitant]
     Indication: LUNG CANCER METASTATIC
     Dosage: 12 MCG PER HOUR
     Route: 062
     Dates: start: 20070215, end: 20070307
  3. DEXAMETHASONE [Concomitant]
     Indication: LUNG CANCER METASTATIC
     Route: 048
     Dates: start: 20070222, end: 20070307
  4. HALOPERIDOL [Concomitant]
     Indication: RESTLESSNESS
     Route: 048
     Dates: start: 20070222, end: 20070307

REACTIONS (2)
  - CONFUSIONAL STATE [None]
  - LUNG NEOPLASM MALIGNANT [None]
